FAERS Safety Report 10229392 (Version 1)
Quarter: 2014Q2

REPORT INFORMATION
  Report Type: Spontaneous
  Country: PL (occurrence: PL)
  Receive Date: 20140611
  Receipt Date: 20140611
  Transmission Date: 20141212
  Serious: Yes (Hospitalization, Other)
  Sender: FDA-Public Use
  Company Number: PL-AMGEN-POLSP2014042329

PATIENT
  Sex: Female

DRUGS (5)
  1. VECTIBIX [Suspect]
     Indication: COLON CANCER METASTATIC
     Dosage: UNK
     Route: 065
  2. FLUOROURACIL [Concomitant]
     Dosage: UNK
  3. FOLINIC ACID [Concomitant]
     Dosage: UNK
  4. OXALIPLATIN [Concomitant]
     Dosage: UNK
  5. IRINOTECAN [Concomitant]
     Dosage: UNK

REACTIONS (1)
  - Abscess limb [Unknown]
